FAERS Safety Report 10241296 (Version 1)
Quarter: 2014Q2

REPORT INFORMATION
  Report Type: Spontaneous
  Country: US (occurrence: US)
  Receive Date: 20140617
  Receipt Date: 20140617
  Transmission Date: 20141212
  Serious: No
  Sender: FDA-Public Use
  Company Number: US-PFIZER INC-2014163223

PATIENT
  Age: 58 Year
  Sex: Female
  Weight: 95.24 kg

DRUGS (1)
  1. SOMAVERT [Suspect]
     Indication: ACROMEGALY
     Dosage: 15 MG, DAILY
     Dates: end: 201401

REACTIONS (1)
  - Myalgia [Not Recovered/Not Resolved]
